FAERS Safety Report 5104604-2 (Version None)
Quarter: 2006Q3

REPORT INFORMATION
  Report Type: 
  Country: None (occurrence: None)
  Receive Date: 20060914
  Receipt Date: 20060511
  Transmission Date: 20061208
  Serious: No
  Sender: FDA-Public Use
  Company Number: US-BRISTOL-MYERS SQUIBB COMPANY-13374582

PATIENT

DRUGS (1)
  1. BUSPAR [Suspect]

REACTIONS (1)
  - ANAL FISSURE [None]
